FAERS Safety Report 9998484 (Version 2)
Quarter: 2014Q2

REPORT INFORMATION
  Report Type: Report from Study
  Country: FR (occurrence: FR)
  Receive Date: 20140312
  Receipt Date: 20140401
  Transmission Date: 20141212
  Serious: Yes (Other)
  Sender: FDA-Public Use
  Company Number: FR-AMGEN-FRANI2014016112

PATIENT
  Age: 70 Year
  Sex: Male

DRUGS (3)
  1. XGEVA [Suspect]
     Indication: BONE DENSITY DECREASED
     Dosage: 120 MG, Q4WK
     Route: 058
     Dates: start: 201305
  2. DENOSUMAB [Suspect]
     Indication: BONE DENSITY DECREASED
     Dosage: UNK
     Route: 065
  3. ZOMETA [Concomitant]
     Indication: METASTASES TO BONE
     Dosage: 4 MG, Q4WK
     Route: 042
     Dates: start: 201111, end: 201212

REACTIONS (1)
  - Osteonecrosis of jaw [Recovering/Resolving]
